FAERS Safety Report 6987572-8 (Version None)
Quarter: 2010Q3

REPORT INFORMATION
  Report Type: 
  Country: None (occurrence: None)
  Receive Date: 20100916
  Receipt Date: 20100906
  Transmission Date: 20110219
  Serious: Yes (Other)
  Sender: FDA-Public Use
  Company Number: US-PFIZER INC-2010104743

PATIENT
  Sex: Female
  Weight: 67 kg

DRUGS (6)
  1. CHANTIX [Suspect]
     Indication: SMOKING CESSATION THERAPY
     Dosage: ONE TABLET, 2X/DAY
     Route: 048
     Dates: start: 20100730, end: 20100808
  2. TRAMADOL [Suspect]
     Indication: FIBROMYALGIA
     Dosage: 50 MG, 4X/DAY, AS NEEDED
     Route: 048
     Dates: start: 20100426, end: 20100808
  3. CYMBALTA [Concomitant]
     Dosage: 120 MG, UNK
  4. VITAMIN D [Concomitant]
     Dosage: 5000 IU, WEEKLY
  5. ONDANSETRON [Concomitant]
     Dosage: 4 MG, TWICE DAILY, AS NEEDED
  6. RIZATRIPTAN [Concomitant]
     Indication: HEADACHE
     Dosage: 10 MG, AS NEEDED

REACTIONS (5)
  - AMNESIA [None]
  - ASTHENIA [None]
  - CONVULSION [None]
  - FALL [None]
  - LOSS OF CONSCIOUSNESS [None]
